FAERS Safety Report 6721170-6 (Version None)
Quarter: 2010Q2

REPORT INFORMATION
  Report Type: 
  Country: None (occurrence: None)
  Receive Date: 20100512
  Receipt Date: 20100428
  Transmission Date: 20101027
  Serious: Yes (Hospitalization)
  Sender: FDA-Public Use
  Company Number: GB-RANBAXY-2010RR-33611

PATIENT
  Age: 84 Year
  Sex: Male

DRUGS (10)
  1. CIPROFLOXACIN [Suspect]
     Indication: URINARY TRACT INFECTION
     Dosage: 500 MG, BID
     Route: 048
     Dates: start: 20100422
  2. WARFARIN SODIUM [Suspect]
  3. BENDROFLUMETHIAZIDE [Concomitant]
     Dosage: 2.5 MG, QD
  4. CLENILE MODULITE [Concomitant]
     Dosage: 2 DF, BID
  5. FERROUS SULFATE TAB [Concomitant]
     Dosage: 200 MG, QD
  6. LACTULOSE [Concomitant]
     Dosage: 10 ML, BID
  7. LANSOPRAZOLE [Concomitant]
     Dosage: 30 MG, QD
  8. LISINOPRIL [Concomitant]
     Dosage: 5 MG, QD
  9. SALBUTAMOL [Concomitant]
     Dosage: 100 UG, PRN
     Route: 055
  10. SENNA [Concomitant]
     Dosage: 7.5 MG, UNK

REACTIONS (6)
  - CONTUSION [None]
  - DECREASED APPETITE [None]
  - DIARRHOEA [None]
  - DRUG INTERACTION [None]
  - INTERNATIONAL NORMALISED RATIO INCREASED [None]
  - WEIGHT DECREASED [None]
